FAERS Safety Report 4576814-4 (Version None)
Quarter: 2005Q1

REPORT INFORMATION
  Report Type: 
  Country: None (occurrence: None)
  Receive Date: 20050210
  Receipt Date: 20050201
  Transmission Date: 20050727
  Serious: Yes (Life-Threatening, Hospitalization, Other)
  Sender: FDA-Public Use
  Company Number: DK-JNJFOC-20050100434

PATIENT
  Sex: Female
  Weight: 58 kg

DRUGS (3)
  1. CAELYX [Suspect]
     Indication: OVARIAN CANCER
     Dosage: 40.5 MG X 4 CYCLES
     Route: 042
  2. GEMZAR [Suspect]
     Indication: OVARIAN CANCER
     Dosage: 1053 MG X 4 CYCLES
     Route: 042
  3. PREDNISOLONE [Concomitant]
     Indication: ANTIEMETIC SUPPORTIVE CARE

REACTIONS (2)
  - ALVEOLITIS [None]
  - PNEUMONITIS [None]
